FAERS Safety Report 7269812-3 (Version None)
Quarter: 2011Q1

REPORT INFORMATION
  Report Type: 
  Country: None (occurrence: None)
  Receive Date: 20110202
  Receipt Date: 20110119
  Transmission Date: 20110831
  Serious: Yes (Other)
  Sender: FDA-Public Use
  Company Number: US-RB-019703-11

PATIENT
  Age: 70 Year
  Sex: Female

DRUGS (2)
  1. MUCINEX [Suspect]
     Route: 048
  2. MUCINEX [Suspect]
     Indication: INCREASED UPPER AIRWAY SECRETION
     Route: 048

REACTIONS (1)
  - FAECES DISCOLOURED [None]
